FAERS Safety Report 6689782-6 (Version None)
Quarter: 2010Q2

REPORT INFORMATION
  Report Type: 
  Country: None (occurrence: None)
  Receive Date: 20100421
  Receipt Date: 20100412
  Transmission Date: 20101027
  Serious: Yes (Other)
  Sender: FDA-Public Use
  Company Number: US-ASTRAZENECA-2009SE12445

PATIENT
  Age: 10645 Day
  Sex: Female
  Weight: 139.7 kg

DRUGS (7)
  1. SEROQUEL [Suspect]
     Route: 048
     Dates: start: 20060510
  2. CYMBALTA [Concomitant]
     Dates: start: 20070709
  3. TRAZODONE [Concomitant]
  4. KLONOPIN [Concomitant]
  5. CELEXA [Concomitant]
  6. DEPAKOTE [Concomitant]
  7. XANAX [Concomitant]

REACTIONS (2)
  - DIABETES MELLITUS [None]
  - NEUROPATHY PERIPHERAL [None]
